FAERS Safety Report 6465486-X (Version None)
Quarter: 2009Q4

REPORT INFORMATION
  Report Type: 
  Country: None (occurrence: None)
  Receive Date: 20091201
  Receipt Date: 20091118
  Transmission Date: 20100525
  Serious: Yes (Hospitalization)
  Sender: FDA-Public Use
  Company Number: FR-GENENTECH-282360

PATIENT
  Sex: Male

DRUGS (18)
  1. MABTHERA [Suspect]
     Indication: NON-HODGKIN'S LYMPHOMA
     Dosage: 780 MG, QOD
     Route: 042
     Dates: start: 20090204, end: 20090204
  2. MABTHERA [Suspect]
     Dosage: UNK
     Dates: start: 20090324
  3. BACTRIM [Suspect]
     Indication: PROPHYLAXIS
     Dosage: UNK
     Route: 048
  4. VEPESID [Suspect]
     Indication: DRUG USE FOR UNKNOWN INDICATION
     Dosage: 210 MG, QD
     Route: 042
     Dates: start: 20090205
  5. BICNU [Suspect]
     Indication: DRUG USE FOR UNKNOWN INDICATION
     Dosage: 210 MG, QD
     Route: 042
     Dates: start: 20090206
  6. MOPRAL [Suspect]
     Indication: DRUG USE FOR UNKNOWN INDICATION
     Dosage: 20 MG, QD
     Route: 048
     Dates: start: 20090208, end: 20090317
  7. METHOTREXATE [Concomitant]
     Indication: NON-HODGKIN'S LYMPHOMA
     Dosage: 4.2 G, QD
     Route: 042
     Dates: start: 20090219
  8. METHOTREXATE [Concomitant]
     Dosage: 15 MG, QD
     Route: 037
     Dates: start: 20090204
  9. METHOTREXATE [Concomitant]
     Dosage: 4.2 G, QD
     Route: 042
     Dates: start: 20090324
  10. DEPO-MEDROL [Concomitant]
     Indication: DRUG USE FOR UNKNOWN INDICATION
     Dosage: 40 MG, QD
     Route: 037
     Dates: start: 20090204, end: 20090204
  11. DEPO-MEDROL [Concomitant]
     Dosage: UNK
     Route: 037
     Dates: start: 20090324
  12. ARACYTINE [Concomitant]
     Indication: DRUG USE FOR UNKNOWN INDICATION
     Dosage: 40 MG, QD
     Route: 037
     Dates: start: 20090204
  13. ARACYTINE [Concomitant]
     Dosage: UNK
     Route: 037
     Dates: start: 20090324
  14. SOLU-MEDROL [Concomitant]
     Indication: DRUG USE FOR UNKNOWN INDICATION
     Dosage: 120 MG, QD
     Route: 042
     Dates: start: 20090204, end: 20090204
  15. SOLU-MEDROL [Concomitant]
     Dosage: 40 MG, QD
     Route: 048
     Dates: start: 20090208
  16. TOPALGIC [Concomitant]
     Indication: DRUG USE FOR UNKNOWN INDICATION
     Route: 048
  17. DI-ANTALVIC [Concomitant]
     Indication: DRUG USE FOR UNKNOWN INDICATION
     Route: 048
  18. VALIUM [Concomitant]
     Indication: DRUG USE FOR UNKNOWN INDICATION
     Dosage: 10 MG, QD
     Route: 048
     Dates: start: 20090208

REACTIONS (1)
  - AGRANULOCYTOSIS [None]
